FAERS Safety Report 24448135 (Version 3)
Quarter: 2025Q1

REPORT INFORMATION
  Report Type: Report from Study
  Country: US (occurrence: US)
  Receive Date: 20241016
  Receipt Date: 20250303
  Transmission Date: 20250409
  Serious: Yes (Hospitalization, Other)
  Sender: AMGEN
  Company Number: US-AMGEN-USASP2024202988

PATIENT
  Sex: Female

DRUGS (2)
  1. PROCYSBI [Suspect]
     Active Substance: CYSTEAMINE BITARTRATE
     Indication: Cystinosis
     Dosage: UNK UNK, BID
     Route: 065
  2. PROCYSBI [Suspect]
     Active Substance: CYSTEAMINE BITARTRATE
     Route: 065
     Dates: start: 20250102

REACTIONS (6)
  - Unevaluable event [Unknown]
  - Altered state of consciousness [Unknown]
  - Chest injury [Unknown]
  - Choking [Unknown]
  - Pharyngeal injury [Unknown]
  - Blood glucose decreased [Unknown]
